FAERS Safety Report 7477594-5 (Version None)
Quarter: 2011Q2

REPORT INFORMATION
  Report Type: 
  Country: None (occurrence: None)
  Receive Date: 20110511
  Receipt Date: 20110511
  Transmission Date: 20111010
  Serious: Yes (Other)
  Sender: FDA-Public Use
  Company Number: None

PATIENT
  Age: 51 Year
  Sex: Female
  Weight: 86.1834 kg

DRUGS (2)
  1. ATENOLOL [Suspect]
     Indication: HYPERTENSION
     Dosage: ONE DAILY PO
     Route: 048
     Dates: start: 20000315, end: 20000419
  2. ATENOLOL [Suspect]
     Indication: TACHYCARDIA
     Dosage: ONE DAILY PO
     Route: 048
     Dates: start: 20000315, end: 20000419

REACTIONS (3)
  - DYSPNOEA [None]
  - PALPITATIONS [None]
  - PRODUCT SUBSTITUTION ISSUE [None]
